FAERS Safety Report 23279717 (Version 1)
Quarter: 2023Q4

REPORT INFORMATION
  Report Type: Spontaneous
  Country: IT (occurrence: IT)
  Receive Date: 20231210
  Receipt Date: 20231210
  Transmission Date: 20240110
  Serious: Yes (Hospitalization, Other)
  Sender: FDA-Public Use
  Company Number: IT-BRUNO-20230592

PATIENT
  Age: 25 Year
  Sex: Male

DRUGS (11)
  1. CEFTRIAXONE [Suspect]
     Active Substance: CEFTRIAXONE\CEFTRIAXONE SODIUM
     Indication: Anti-infective therapy
     Dosage: UNK
     Route: 065
  2. CEFTRIAXONE [Suspect]
     Active Substance: CEFTRIAXONE\CEFTRIAXONE SODIUM
     Indication: Meningococcal infection
  3. MEROPENEM [Suspect]
     Active Substance: MEROPENEM
     Indication: Anti-infective therapy
     Dosage: UNK
     Route: 065
  4. CEFEPIME [Suspect]
     Active Substance: CEFEPIME HYDROCHLORIDE
     Indication: Anti-infective therapy
     Dosage: UNK
     Route: 065
  5. CEFEPIME [Suspect]
     Active Substance: CEFEPIME HYDROCHLORIDE
     Indication: Meningococcal infection
  6. CLINDAMYCIN [Suspect]
     Active Substance: CLINDAMYCIN
     Indication: Anti-infective therapy
     Dosage: UNK
     Route: 065
  7. CLINDAMYCIN [Suspect]
     Active Substance: CLINDAMYCIN
     Dosage: UNK
     Route: 065
  8. DAPTOMYCIN [Suspect]
     Active Substance: DAPTOMYCIN
     Indication: Anti-infective therapy
     Dosage: UNK
     Route: 065
  9. VANCOMYCIN [Suspect]
     Active Substance: VANCOMYCIN
     Indication: Anti-infective therapy
     Dosage: UNK
     Route: 065
  10. VANCOMYCIN [Suspect]
     Active Substance: VANCOMYCIN
     Dosage: UNK
     Route: 065
  11. RAVULIZUMAB [Concomitant]
     Active Substance: RAVULIZUMAB
     Indication: Paroxysmal nocturnal haemoglobinuria
     Dosage: UNK
     Route: 065
     Dates: start: 202203

REACTIONS (7)
  - Apical granuloma [Recovering/Resolving]
  - Condition aggravated [Recovering/Resolving]
  - Candida infection [Recovering/Resolving]
  - Delirium [Recovering/Resolving]
  - Meningococcal infection [Recovering/Resolving]
  - Oral bacterial infection [Recovering/Resolving]
  - Drug ineffective [Unknown]
